FAERS Safety Report 4789675-5 (Version None)
Quarter: 2005Q4

REPORT INFORMATION
  Report Type: 
  Country: None (occurrence: None)
  Receive Date: 20051006
  Receipt Date: 20050927
  Transmission Date: 20060501
  Serious: Yes (Hospitalization)
  Sender: FDA-Public Use
  Company Number: 2005SE05495

PATIENT
  Age: 12356 Day
  Sex: Female

DRUGS (2)
  1. QUETIAPINE FUMARATE [Suspect]
     Indication: SCHIZOPHRENIA
     Route: 048
     Dates: start: 20050815
  2. QUETIAPINE FUMARATE [Suspect]
     Route: 048

REACTIONS (1)
  - SCHIZOPHRENIA [None]
